FAERS Safety Report 8138943-8 (Version None)
Quarter: 2012Q1

REPORT INFORMATION
  Report Type: 
  Country: None (occurrence: None)
  Receive Date: 20120215
  Receipt Date: 20120203
  Transmission Date: 20120608
  Serious: Yes (Other)
  Sender: FDA-Public Use
  Company Number: DE-BRISTOL-MYERS SQUIBB COMPANY-16384679

PATIENT
  Age: 51 Year
  Sex: Male

DRUGS (2)
  1. ABILIFY [Suspect]
     Indication: SCHIZOPHRENIA
     Dosage: AMBULANT WITH 5MG,DOSE UP-TITRATED FROM 5MG TO 30MG,25MG,INCREASED TO 30MG,DOSE REDUCED TO 25MG
     Dates: start: 20111001
  2. QUETIAPINE [Suspect]
     Dates: start: 20111101

REACTIONS (2)
  - SUPRAVENTRICULAR EXTRASYSTOLES [None]
  - BUNDLE BRANCH BLOCK RIGHT [None]
